FAERS Safety Report 16809614 (Version 1)
Quarter: 2019Q3

REPORT INFORMATION
  Report Type: Spontaneous
  Country: US (occurrence: US)
  Receive Date: 20190725
  Receipt Date: 20190725
  Transmission Date: 20191005
  Serious: No
  Sender: FDA-Public Use
  Company Number: None

PATIENT
  Age: 54 Year
  Sex: Female

DRUGS (1)
  1. TRETINOIN CAP 10MG [Suspect]
     Active Substance: TRETINOIN
     Dates: start: 201906

REACTIONS (3)
  - Lip dry [None]
  - Skin discolouration [None]
  - Rash [None]

NARRATIVE: CASE EVENT DATE: 20190725
